FAERS Safety Report 8408751-9 (Version None)
Quarter: 2012Q2

REPORT INFORMATION
  Report Type: 
  Country: None (occurrence: None)
  Receive Date: 20120604
  Receipt Date: 20120528
  Transmission Date: 20120825
  Serious: Yes (Hospitalization, Other)
  Sender: FDA-Public Use
  Company Number: PHHY2012AR021997

PATIENT
  Sex: Male

DRUGS (2)
  1. EXELON [Suspect]
     Indication: AMNESIA
     Dosage: 9.5 MG, ONE PATCH DAILY
     Route: 062
  2. DIOVAN [Suspect]
     Indication: HYPERTENSION
     Dosage: 320 MG, ONE TABLET DAILY

REACTIONS (2)
  - INFARCTION [None]
  - ARTERIAL OCCLUSIVE DISEASE [None]
